FAERS Safety Report 5654489-0 (Version None)
Quarter: 2008Q1

REPORT INFORMATION
  Report Type: 
  Country: None (occurrence: None)
  Receive Date: 20080205
  Receipt Date: 20070228
  Transmission Date: 20080703
  Serious: Yes (Other)
  Sender: FDA-Public Use
  Company Number: MEDI-0005476

PATIENT
  Age: 48 Year
  Sex: Female

DRUGS (3)
  1. ETHYOL [Suspect]
     Dosage: ^RECEIVED 8 DOES OF AMIFOSTINE^
  2. CISPLATIN [Concomitant]
  3. CARBOPLATIN [Concomitant]

REACTIONS (4)
  - ANAPHYLACTIC REACTION [None]
  - LOCAL REACTION [None]
  - PYREXIA [None]
  - RASH GENERALISED [None]
